FAERS Safety Report 8578167 (Version 5)
Quarter: 2013Q1

REPORT INFORMATION
  Report Type: Spontaneous
  Country: GR (occurrence: GR)
  Receive Date: 20120524
  Receipt Date: 20130326
  Transmission Date: 20140127
  Serious: Yes (Other)
  Sender: FDA-Public Use
  Company Number: GR-AMGEN-GRCSP2012031503

PATIENT
  Age: 62 Year
  Sex: Female
  Weight: 90 kg

DRUGS (5)
  1. PROLIA [Suspect]
     Indication: OSTEOPOROSIS
     Dosage: 60 MG, Q6MO
     Route: 058
     Dates: start: 20111006
  2. VITAMIN D /00107901/ [Concomitant]
  3. ANTIPSYCHOTICS [Concomitant]
  4. EUTIROX [Concomitant]
     Indication: HYPOTHYROIDISM
     Dosage: 1 UNK, UNK
     Route: 048
  5. CRESTOR [Concomitant]
     Indication: HYPERCHOLESTEROLAEMIA
     Dosage: UNK UNK, QD
     Route: 048

REACTIONS (4)
  - Tooth extraction [Recovered/Resolved]
  - Gingival infection [Recovered/Resolved]
  - Inflammation [Recovered/Resolved]
  - Osteonecrosis of jaw [Recovered/Resolved]
